FAERS Safety Report 25826402 (Version 2)
Quarter: 2025Q3

REPORT INFORMATION
  Report Type: Report from Study
  Country: CA (occurrence: CA)
  Receive Date: 20250920
  Receipt Date: 20250926
  Transmission Date: 20251020
  Serious: Yes (Hospitalization)
  Sender: CSL BEHRING
  Company Number: CA-BEH-2025215623

PATIENT
  Age: 80 Year
  Sex: Female
  Weight: 95 kg

DRUGS (22)
  1. HIZENTRA [Suspect]
     Active Substance: HUMAN IMMUNOGLOBULIN G
     Indication: Secondary immunodeficiency
     Dosage: 18 G, QOW
     Route: 058
     Dates: start: 20240917
  2. HIZENTRA [Suspect]
     Active Substance: HUMAN IMMUNOGLOBULIN G
     Route: 058
     Dates: start: 20240917
  3. HIZENTRA [Suspect]
     Active Substance: HUMAN IMMUNOGLOBULIN G
     Route: 058
     Dates: start: 20240917
  4. HIZENTRA [Suspect]
     Active Substance: HUMAN IMMUNOGLOBULIN G
     Route: 065
     Dates: start: 20250806
  5. MAGNESIUM [Concomitant]
     Active Substance: MAGNESIUM
     Indication: Product used for unknown indication
     Route: 065
  6. SODIUM [Concomitant]
     Active Substance: SODIUM
     Indication: Product used for unknown indication
     Route: 065
  7. Prochlorazine [Concomitant]
     Indication: Product used for unknown indication
     Route: 065
  8. SPIRONOLACTONE [Concomitant]
     Active Substance: SPIRONOLACTONE
  9. ROSUVASTATIN [Concomitant]
     Active Substance: ROSUVASTATIN
  10. DILTIAZEM [Concomitant]
     Active Substance: DILTIAZEM
  11. CITALOPRAM [Concomitant]
     Active Substance: CITALOPRAM
  12. APIXABAN [Concomitant]
     Active Substance: APIXABAN
  13. CALCIUM [Concomitant]
     Active Substance: CALCIUM
  14. FOLIC ACID [Concomitant]
     Active Substance: FOLIC ACID
  15. CHOLECALCIFEROL [Concomitant]
     Active Substance: CHOLECALCIFEROL
  16. ACETAMINOPHEN [Concomitant]
     Active Substance: ACETAMINOPHEN
  17. POLYETHYLENE GLYCOL 3350 [Concomitant]
     Active Substance: POLYETHYLENE GLYCOL 3350
  18. MELATONIN [Concomitant]
     Active Substance: MELATONIN
  19. HYDROMORPHONE [Concomitant]
     Active Substance: HYDROMORPHONE
  20. SYMBICORT [Concomitant]
     Active Substance: BUDESONIDE\FORMOTEROL FUMARATE DIHYDRATE
  21. HYDROMORPHONE [Concomitant]
     Active Substance: HYDROMORPHONE
  22. ALBUTEROL [Concomitant]
     Active Substance: ALBUTEROL

REACTIONS (5)
  - Assisted suicide [Fatal]
  - Infusion site swelling [Unknown]
  - Infusion site pruritus [Unknown]
  - Device leakage [Unknown]
  - Incorrect dose administered [Unknown]

NARRATIVE: CASE EVENT DATE: 20250806
